FAERS Safety Report 7244393-9 (Version None)
Quarter: 2011Q1

REPORT INFORMATION
  Report Type: 
  Country: None (occurrence: None)
  Receive Date: 20110125
  Receipt Date: 20100707
  Transmission Date: 20110831
  Serious: Yes (Other)
  Sender: FDA-Public Use
  Company Number: US-PFIZER INC-2010073380

PATIENT
  Age: 60 Year
  Sex: Female
  Weight: 89.8 kg

DRUGS (3)
  1. ARGATROBAN [Suspect]
     Indication: HEPARIN-INDUCED THROMBOCYTOPENIA
     Dosage: 3 MG, UNK
     Route: 041
     Dates: start: 20100602, end: 20100609
  2. WARFARIN [Concomitant]
     Dosage: 4 MG, UNK
  3. WARFARIN [Concomitant]
     Dosage: 5 MG, UNK

REACTIONS (2)
  - INTERNATIONAL NORMALISED RATIO INCREASED [None]
  - HAEMOGLOBIN DECREASED [None]
